FAERS Safety Report 5542959-5 (Version None)
Quarter: 2007Q4

REPORT INFORMATION
  Report Type: 
  Country: None (occurrence: None)
  Receive Date: 20071210
  Receipt Date: 20071205
  Transmission Date: 20080405
  Serious: Yes (Hospitalization, Other)
  Sender: FDA-Public Use
  Company Number: GR-MERCK-0712GRC00002

PATIENT
  Age: 70 Year
  Sex: Female

DRUGS (3)
  1. ZOCOR [Suspect]
     Indication: DYSLIPIDAEMIA
     Route: 048
  2. VALSARTAN [Concomitant]
     Indication: HYPERTENSION
     Route: 048
  3. METFORMIN [Concomitant]
     Indication: TYPE 2 DIABETES MELLITUS
     Route: 048

REACTIONS (3)
  - DYSPNOEA [None]
  - OEDEMA PERIPHERAL [None]
  - RHABDOMYOLYSIS [None]
